FAERS Safety Report 14237527 (Version 2)
Quarter: 2018Q1

REPORT INFORMATION
  Report Type: Report from Study
  Country: CA (occurrence: CA)
  Receive Date: 20171129
  Receipt Date: 20180111
  Transmission Date: 20180508
  Serious: Yes (Other)
  Sender: FDA-Public Use
  Company Number: CA-HLSUS-2017-CA-001216

PATIENT
  Age: 51 Year
  Sex: Female

DRUGS (8)
  1. RISPERDAL CONSTA [Concomitant]
     Active Substance: RISPERIDONE
     Dosage: 50 MG EVERY 14 DAYS
     Dates: start: 20170830, end: 20170831
  2. PANTOPRAZOLE EC [Concomitant]
     Dosage: 40 MG 2 TIMES A DAY
     Route: 048
     Dates: start: 20170830, end: 20170831
  3. CLONAZEPAM. [Concomitant]
     Active Substance: CLONAZEPAM
     Dosage: 2 MG THREE TIMES A DAY
     Route: 048
     Dates: start: 20170831, end: 20170831
  4. RAMIPRIL. [Concomitant]
     Active Substance: RAMIPRIL
     Dosage: 2.5 MG ONCE  DAY
     Route: 048
     Dates: start: 20170831, end: 20170831
  5. ZOPICLONE [Concomitant]
     Active Substance: ZOPICLONE
     Dosage: 7.5 MG BEDTIME
     Dates: start: 20170830, end: 20170830
  6. ACETAMINOPHEN. [Concomitant]
     Active Substance: ACETAMINOPHEN
     Dosage: 650 MG 2 TIMES A DAY
     Route: 048
     Dates: start: 20170830, end: 20170907
  7. RISPERIDONE. [Concomitant]
     Active Substance: RISPERIDONE
     Dosage: 2 MG 2 TIMES A DAY
     Route: 048
     Dates: start: 20170830, end: 20170831
  8. CLOZARIL [Suspect]
     Active Substance: CLOZAPINE
     Dosage: 12.5 MG AT BEDTIME
     Route: 048
     Dates: start: 20170910, end: 20170912

REACTIONS (1)
  - Transient ischaemic attack [Unknown]

NARRATIVE: CASE EVENT DATE: 20171122
